FAERS Safety Report 6183047-7 (Version None)
Quarter: 2009Q2

REPORT INFORMATION
  Report Type: 
  Country: None (occurrence: None)
  Receive Date: 20090507
  Receipt Date: 20090428
  Transmission Date: 20091009
  Serious: Yes (Hospitalization)
  Sender: FDA-Public Use
  Company Number: FR-GILEAD-2009-0021718

PATIENT
  Age: 29 Year
  Sex: Female

DRUGS (5)
  1. TRUVADA [Suspect]
     Indication: HIV INFECTION
     Route: 048
     Dates: start: 20061001
  2. KALETRA [Suspect]
     Route: 048
     Dates: start: 20061001
  3. VELBE [Suspect]
     Route: 042
     Dates: start: 20090106
  4. DOXORUBICIN HCL [Concomitant]
     Route: 042
     Dates: start: 20090106
  5. BLEOMYCINE BELLON [Concomitant]
     Route: 042

REACTIONS (1)
  - FEBRILE NEUTROPENIA [None]
